FAERS Safety Report 6473774-6 (Version None)
Quarter: 2009Q4

REPORT INFORMATION
  Report Type: 
  Country: None (occurrence: None)
  Receive Date: 20091204
  Receipt Date: 20091130
  Transmission Date: 20100525
  Serious: Yes (Other)
  Sender: FDA-Public Use
  Company Number: JP-PFIZER INC-2009303230

PATIENT
  Age: 19 Year
  Sex: Female

DRUGS (1)
  1. ATARAX [Suspect]
     Indication: PALPITATIONS
     Dosage: 25 MG, DAILY
     Route: 030
     Dates: start: 20091119, end: 20091119

REACTIONS (1)
  - SKIN NECROSIS [None]
